FAERS Safety Report 15310903 (Version 3)
Quarter: 2018Q3

REPORT INFORMATION
  Report Type: Report from Study
  Country: DE (occurrence: DE)
  Receive Date: 20180823
  Receipt Date: 20180918
  Transmission Date: 20181010
  Serious: Yes (Other)
  Sender: FDA-Public Use
  Company Number: DE-JNJFOC-20180821633

PATIENT
  Sex: Male
  Weight: 55 kg

DRUGS (9)
  1. IBUPROFEN. [Concomitant]
     Active Substance: IBUPROFEN
     Indication: AXIAL SPONDYLOARTHRITIS
     Dosage: ONGOING AT STUDY END
     Route: 065
     Dates: start: 20131204
  2. SIMPONI [Suspect]
     Active Substance: GOLIMUMAB
     Indication: AXIAL SPONDYLOARTHRITIS
     Route: 058
     Dates: start: 20180106
  3. CELEBREX [Concomitant]
     Active Substance: CELECOXIB
     Indication: AXIAL SPONDYLOARTHRITIS
     Route: 065
     Dates: start: 20111013, end: 20120709
  4. TILIDIN [Concomitant]
     Active Substance: NALOXONE HYDROCHLORIDE\TILIDINE HYDROCHLORIDE
     Indication: AXIAL SPONDYLOARTHRITIS
     Route: 065
     Dates: start: 20171017
  5. MELOXICAM. [Concomitant]
     Active Substance: MELOXICAM
     Indication: AXIAL SPONDYLOARTHRITIS
     Route: 065
     Dates: start: 20130114
  6. INDOMETACIN [Concomitant]
     Active Substance: INDOMETHACIN
     Indication: AXIAL SPONDYLOARTHRITIS
     Route: 065
     Dates: start: 20160811, end: 20161110
  7. NAPROXEN. [Concomitant]
     Active Substance: NAPROXEN
     Indication: AXIAL SPONDYLOARTHRITIS
     Route: 065
     Dates: start: 20120709, end: 20130114
  8. LODOTRA [Concomitant]
     Active Substance: PREDNISONE
     Indication: AXIAL SPONDYLOARTHRITIS
     Route: 065
     Dates: start: 20170518, end: 20170518
  9. DICLOFENAC [Concomitant]
     Active Substance: DICLOFENAC
     Indication: AXIAL SPONDYLOARTHRITIS
     Route: 065
     Dates: start: 20110131, end: 20110421

REACTIONS (2)
  - Drug ineffective [Unknown]
  - Ankylosing spondylitis [Not Recovered/Not Resolved]

NARRATIVE: CASE EVENT DATE: 2018
